FAERS Safety Report 5272357-3 (Version None)
Quarter: 2007Q1

REPORT INFORMATION
  Report Type: 
  Country: None (occurrence: None)
  Receive Date: 20070320
  Receipt Date: 20070320
  Transmission Date: 20070707
  Serious: No
  Sender: FDA-Public Use
  Company Number: None

PATIENT
  Weight: 78.9259 kg

DRUGS (1)
  1. FEXOFENADINE [Suspect]
     Indication: RHINITIS ALLERGIC
     Dosage: 180MG DAILY PO
     Route: 048
     Dates: start: 20051216, end: 20060101

REACTIONS (2)
  - BLOOD PRESSURE INCREASED [None]
  - MUSCLE SPASMS [None]
